FAERS Safety Report 8547933-2 (Version None)
Quarter: 2012Q3

REPORT INFORMATION
  Report Type: 
  Country: None (occurrence: None)
  Receive Date: 20120728
  Receipt Date: 20101203
  Transmission Date: 20120928
  Serious: Yes (Hospitalization)
  Sender: FDA-Public Use
  Company Number: US-BAYER-201038187NA

PATIENT
  Age: 38 Year
  Sex: Female
  Weight: 107.73 kg

DRUGS (15)
  1. METFORMIN HYDROCHLORIDE [Concomitant]
     Dosage: 1500 MG (DAILY DOSE), BID, ORAL
     Route: 048
     Dates: start: 20051201, end: 20100101
  2. PRILOSEC [Concomitant]
     Dosage: 40 MG (DAILY DOSE), BID, ORAL
     Route: 048
     Dates: start: 20071201, end: 20090401
  3. YASMIN [Suspect]
     Dosage: UNK
     Route: 048
     Dates: start: 20051001, end: 20080901
  4. DOXYCYCLINE HCL [Concomitant]
     Dosage: 200 MG (DAILY DOSE), BID,
  5. ZOCOR [Concomitant]
     Dosage: 20 MG (DAILY DOSE), QD, ORAL
     Route: 048
  6. DROSPIRENONE AND ETHINYL ESTRADIOL [Suspect]
     Route: 048
     Dates: start: 20081001, end: 20090101
  7. ALLEGRA [Concomitant]
     Route: 048
  8. MULTI-VITAMIN [Concomitant]
     Route: 048
  9. YAZ [Suspect]
     Route: 048
     Dates: start: 20060101, end: 20090301
  10. FLONASE [Concomitant]
     Indication: NASAL CONGESTION
     Dosage: 2 SQUIRTS EACH NARES Q DAY AS NEEDED
     Route: 045
     Dates: start: 20090301, end: 20100301
  11. REGLAN [Concomitant]
     Dosage: 30 MG (DAILY DOSE), TID, ORAL
     Route: 048
  12. RANITIDINE [Concomitant]
     Dosage: UNK
     Dates: start: 20090101, end: 20100401
  13. MICARDIS HCT [Concomitant]
     Dosage: 80/12.5 MG
     Route: 048
     Dates: start: 20080101
  14. HYDROCHLOROTHIAZIDE [Concomitant]
     Dosage: UNK
     Dates: start: 20040401, end: 20060501
  15. JANUVIA [Concomitant]
     Dosage: 100 MG (DAILY DOSE), QD, ORAL
     Route: 048
     Dates: start: 20070924, end: 20091201

REACTIONS (5)
  - DEEP VEIN THROMBOSIS [None]
  - ARTHRALGIA [None]
  - DYSPNOEA [None]
  - PULMONARY EMBOLISM [None]
  - PLEURITIC PAIN [None]
